FAERS Safety Report 25156760 (Version 1)
Quarter: 2025Q2

REPORT INFORMATION
  Report Type: Report from Study
  Country: US (occurrence: US)
  Receive Date: 20250403
  Receipt Date: 20250403
  Transmission Date: 20250716
  Serious: Yes (Hospitalization, Other)
  Sender: ABBVIE
  Company Number: US-ABBVIE-6144789

PATIENT
  Age: 76 Year
  Sex: Female

DRUGS (1)
  1. SKYRIZI [Suspect]
     Active Substance: RISANKIZUMAB-RZAA
     Indication: Colitis ulcerative
     Route: 058
     Dates: start: 20240828

REACTIONS (6)
  - Memory impairment [Unknown]
  - Parkinson^s disease [Unknown]
  - Asthenia [Unknown]
  - White blood cell count increased [Unknown]
  - Depressed level of consciousness [Unknown]
  - Hypophagia [Unknown]
